FAERS Safety Report 9748324 (Version 1)
Quarter: 2013Q4

REPORT INFORMATION
  Report Type: Spontaneous
  Country: US (occurrence: None)
  Receive Date: 20131206
  Receipt Date: 20131206
  Transmission Date: 20140711
  Serious: Yes (Hospitalization)
  Sender: FDA-Public Use
  Company Number: None

PATIENT
  Age: 82 Year
  Sex: Female
  Weight: 84.6 kg

DRUGS (11)
  1. PRADAXA [Suspect]
     Indication: CEREBROVASCULAR ACCIDENT PROPHYLAXIS
     Dosage: 1 CAPSULE, BID, ORAL
     Route: 048
     Dates: start: 20110901, end: 20111001
  2. PRADAXA [Suspect]
     Indication: ATRIAL FIBRILLATION
     Dosage: 1 CAPSULE, BID, ORAL
     Route: 048
     Dates: start: 20110901, end: 20111001
  3. DILTIAZEM [Concomitant]
  4. METOCLOPRAMIDE [Concomitant]
  5. ACETAMINOPHEN [Concomitant]
  6. ASPIRIN [Concomitant]
  7. LISINOPRIL [Concomitant]
  8. OMEPRAZOLE [Concomitant]
  9. GLIMEPIRIDE [Concomitant]
  10. LEVOTHYROXINE [Concomitant]
  11. CALCIUM+VITAMIN D [Concomitant]

REACTIONS (10)
  - Unresponsive to stimuli [None]
  - Hypotension [None]
  - Tachycardia [None]
  - Malaise [None]
  - Nausea [None]
  - Abdominal pain [None]
  - Constipation [None]
  - Haematochezia [None]
  - Large intestinal ulcer [None]
  - Rectal ulcer [None]
